FAERS Safety Report 5081307-4 (Version None)
Quarter: 2006Q3

REPORT INFORMATION
  Report Type: 
  Country: None (occurrence: None)
  Receive Date: 20060810
  Receipt Date: 20060731
  Transmission Date: 20061208
  Serious: Yes (Other)
  Sender: FDA-Public Use
  Company Number: 2930

PATIENT
  Age: 67 Year
  Sex: Male
  Weight: 106.5953 kg

DRUGS (1)
  1. AMNESTEEM [Suspect]
     Indication: ICHTHYOSIS
     Dosage: 80 MG BID PO
     Route: 048

REACTIONS (3)
  - DRUG EFFECT DECREASED [None]
  - EXOSTOSIS [None]
  - THERAPEUTIC RESPONSE UNEXPECTED WITH DRUG SUBSTITUTION [None]
